FAERS Safety Report 18996513 (Version 1)
Quarter: 2021Q1

REPORT INFORMATION
  Report Type: Spontaneous
  Country: US (occurrence: US)
  Receive Date: 20210311
  Receipt Date: 20210311
  Transmission Date: 20210420
  Serious: Yes (Death)
  Sender: FDA-Public Use
  Company Number: None

PATIENT
  Age: 19 Year
  Sex: Male
  Weight: 81 kg

DRUGS (1)
  1. RITUXIMAB. [Suspect]
     Active Substance: RITUXIMAB
     Indication: NEPHROTIC SYNDROME
     Dates: start: 20130101, end: 20130101

REACTIONS (4)
  - Haematochezia [None]
  - Liver transplant [None]
  - Haematemesis [None]
  - Hepatic failure [None]

NARRATIVE: CASE EVENT DATE: 20160613
